FAERS Safety Report 9371729 (Version 2)
Quarter: 2013Q3

REPORT INFORMATION
  Report Type: Report from Study
  Country: US (occurrence: US)
  Receive Date: 20130627
  Receipt Date: 20130702
  Transmission Date: 20140515
  Serious: Yes (Hospitalization)
  Sender: FDA-Public Use
  Company Number: US-BAYER-2013-024577

PATIENT
  Age: 74 Year
  Sex: Female

DRUGS (15)
  1. STIVARGA [Suspect]
     Indication: COLON CANCER
     Dosage: 120 MG, QD (40MG, 3 TABLETS, DAILY)
     Route: 048
     Dates: start: 20130218, end: 20130322
  2. STIVARGA [Suspect]
     Indication: COLON CANCER
     Dosage: 80 MG, QD (40MG, 2 TABLETS, DAILY)
     Route: 048
     Dates: start: 20130403, end: 20130403
  3. STIVARGA [Suspect]
     Indication: COLON CANCER
     Dosage: UNK
     Dates: start: 20130214
  4. ASCORBIC ACID [Concomitant]
     Dosage: 500 MG BID
  5. CALCIUM [Concomitant]
  6. FIBER [Concomitant]
  7. FOLIC ACID [Concomitant]
  8. IBUPROFEN [Concomitant]
  9. LOPERAMIDE [Concomitant]
  10. MULTIVITAMIN [Concomitant]
  11. OMEGA 3 FATTY ACIDS [Concomitant]
  12. VITAMIN E [Concomitant]
  13. OXYCODONE [Concomitant]
  14. OXYCONTIN [Concomitant]
  15. PROCHLORPERAZINE [Concomitant]

REACTIONS (16)
  - Petechiae [Recovered/Resolved]
  - Pyrexia [None]
  - Hypovolaemia [None]
  - Hyponatraemia [None]
  - Cerebral haemorrhage [None]
  - Palmar-plantar erythrodysaesthesia syndrome [Not Recovered/Not Resolved]
  - Rash erythematous [Not Recovered/Not Resolved]
  - Thrombocytopenia [None]
  - Burning sensation [Recovered/Resolved]
  - Diarrhoea [Recovering/Resolving]
  - Dysphonia [None]
  - Fatigue [None]
  - Mucosal inflammation [None]
  - Pain [Recovered/Resolved]
  - Dry skin [Not Recovered/Not Resolved]
  - Flatulence [Not Recovered/Not Resolved]
